FAERS Safety Report 12835799 (Version 2)
Quarter: 2016Q4

REPORT INFORMATION
  Report Type: Spontaneous
  Country: DE (occurrence: DE)
  Receive Date: 20161011
  Receipt Date: 20161025
  Transmission Date: 20170207
  Serious: Yes (Other)
  Sender: FDA-Public Use
  Company Number: PHHY2016DE122322

PATIENT
  Sex: Female

DRUGS (2)
  1. LETROZOLE. [Suspect]
     Active Substance: LETROZOLE
     Indication: PRODUCT USED FOR UNKNOWN INDICATION
     Route: 065
  2. AFINITOR [Suspect]
     Active Substance: EVEROLIMUS
     Indication: PRODUCT USED FOR UNKNOWN INDICATION
     Dosage: 10 MG, QD
     Route: 048
     Dates: start: 20160701, end: 20160830

REACTIONS (7)
  - Erythema [Unknown]
  - Flushing [Unknown]
  - Rash pruritic [Recovered/Resolved]
  - Visual impairment [Unknown]
  - Swelling [Recovered/Resolved]
  - Papule [Unknown]
  - Urticaria [Unknown]

NARRATIVE: CASE EVENT DATE: 20160826
